FAERS Safety Report 21927443 (Version 9)
Quarter: 2023Q2

REPORT INFORMATION
  Report Type: Report from Study
  Country: CA (occurrence: CA)
  Receive Date: 20230130
  Receipt Date: 20230424
  Transmission Date: 20230721
  Serious: Yes (Hospitalization, Other)
  Sender: FDA-Public Use
  Company Number: CA-GILEAD-2022-0581504

PATIENT
  Age: 61 Year
  Sex: Female

DRUGS (26)
  1. SACITUZUMAB GOVITECAN-HZIY [Suspect]
     Active Substance: SACITUZUMAB GOVITECAN-HZIY
     Indication: Triple negative breast cancer
     Dosage: 570 MG, C2D1
     Route: 042
     Dates: start: 20220601
  2. SACITUZUMAB GOVITECAN-HZIY [Suspect]
     Active Substance: SACITUZUMAB GOVITECAN-HZIY
     Dosage: 635 MG ON C1D1
     Route: 042
     Dates: start: 20220510
  3. SACITUZUMAB GOVITECAN-HZIY [Suspect]
     Active Substance: SACITUZUMAB GOVITECAN-HZIY
     Dosage: 635 MG
     Route: 042
     Dates: start: 20220510
  4. SACITUZUMAB GOVITECAN-HZIY [Suspect]
     Active Substance: SACITUZUMAB GOVITECAN-HZIY
     Dosage: UNK ON C1D1 AND C1D8
     Route: 042
     Dates: start: 20220810, end: 20220818
  5. SACITUZUMAB GOVITECAN-HZIY [Suspect]
     Active Substance: SACITUZUMAB GOVITECAN-HZIY
     Dosage: 635 MG
     Route: 042
     Dates: start: 20220902
  6. SACITUZUMAB GOVITECAN-HZIY [Suspect]
     Active Substance: SACITUZUMAB GOVITECAN-HZIY
     Dosage: 635 MG
     Route: 042
  7. SACITUZUMAB GOVITECAN-HZIY [Suspect]
     Active Substance: SACITUZUMAB GOVITECAN-HZIY
     Dosage: 635 MG
     Route: 042
  8. SACITUZUMAB GOVITECAN-HZIY [Suspect]
     Active Substance: SACITUZUMAB GOVITECAN-HZIY
     Dosage: UNK
     Route: 042
     Dates: start: 20221214
  9. SACITUZUMAB GOVITECAN-HZIY [Suspect]
     Active Substance: SACITUZUMAB GOVITECAN-HZIY
     Dosage: UNK
     Route: 042
     Dates: start: 20221221
  10. SACITUZUMAB GOVITECAN-HZIY [Suspect]
     Active Substance: SACITUZUMAB GOVITECAN-HZIY
     Dosage: 635 MG
     Route: 042
     Dates: start: 20220510
  11. SACITUZUMAB GOVITECAN-HZIY [Suspect]
     Active Substance: SACITUZUMAB GOVITECAN-HZIY
     Dosage: 635 MG
     Route: 042
     Dates: start: 20230301
  12. DECADRON [Concomitant]
     Active Substance: DEXAMETHASONE
     Dosage: 10 MG IV (PRE-MEDICATION)8 MG PO (AFTER INFUSION DAY 2 AND 4) AND DAY 9 AND 11)
     Route: 042
  13. DECADRON [Concomitant]
     Active Substance: DEXAMETHASONE
     Dosage: 10 MG, PRE-MEDICATION PRIOR TO TRODELVY
     Route: 042
  14. DECADRON [Concomitant]
     Active Substance: DEXAMETHASONE
     Dosage: 10 MG
     Route: 048
  15. DECADRON [Concomitant]
     Active Substance: DEXAMETHASONE
     Dosage: 10 MG  IV(PRE-MEDICATION PRIOR TO TRODELVY)
  16. GRANISETRON [Concomitant]
     Active Substance: GRANISETRON
     Dosage: 1 MG, PRE-MEDICATION PRIOR TO TRODELVY
     Route: 048
  17. APREPITANT [Concomitant]
     Active Substance: APREPITANT
     Dosage: 125 MG PO DAY 1, DAY 8 80 MG PO DAY TO DAY 3, DAY 9 TO DAY 10
  18. APREPITANT [Concomitant]
     Active Substance: APREPITANT
     Dosage: 125 MG, PRE-MEDICATION PRIOR TO TRODELVY
     Route: 048
  19. APREPITANT [Concomitant]
     Active Substance: APREPITANT
     Dosage: 125 MG PO (PRE-MEDICATION PRIOR TO TRODELVY)
  20. APREPITANT [Concomitant]
     Active Substance: APREPITANT
     Dosage: 125 MG PO (PRE-MEDICATION PRIOR TO TRODELVY)
  21. PROCHLORPERAZINE [Concomitant]
     Active Substance: PROCHLORPERAZINE
     Dosage: 10 MG PO EVERY 6 HOURS (AFTER INFUSION)
  22. DEXAMETHASONE [Concomitant]
     Active Substance: DEXAMETHASONE
     Dosage: PRE-MEDICATION PRIOR TO TRODELVY
  23. DEXAMETHASONE [Concomitant]
     Active Substance: DEXAMETHASONE
     Dosage: 10 MG PIV (PRE-MEDICATION PRIOR TO TRODELVY)
  24. DEXAMETHASONE [Concomitant]
     Active Substance: DEXAMETHASONE
     Dosage: 10 MG PIV (PRE-MEDICATION PRIOR TO TRODELVY)
  25. DEXAMETHASONE [Concomitant]
     Active Substance: DEXAMETHASONE
     Dosage: 10 MG PIV (PRE-MEDICATION PRIOR TO TRODELVY)
  26. DIPHENHYDRAMINE [Concomitant]
     Active Substance: DIPHENHYDRAMINE
     Dosage: PRE-MEDICATION PRIOR TO TRODELVY
     Route: 048

REACTIONS (63)
  - Lung disorder [Unknown]
  - Pneumonia [Recovered/Resolved]
  - Hot flush [Recovered/Resolved]
  - Product leakage [Recovered/Resolved]
  - Wound [Not Recovered/Not Resolved]
  - Feeling abnormal [Not Recovered/Not Resolved]
  - Fatigue [Not Recovered/Not Resolved]
  - Migraine [Recovered/Resolved]
  - Migraine [Unknown]
  - Headache [Unknown]
  - Weight increased [Unknown]
  - Diarrhoea [Unknown]
  - Hypertension [Unknown]
  - Diarrhoea [Unknown]
  - Arthralgia [Unknown]
  - Weight fluctuation [Unknown]
  - Cough [Unknown]
  - Sputum discoloured [Unknown]
  - Inappropriate schedule of product administration [Unknown]
  - Product use issue [Unknown]
  - Weight increased [Unknown]
  - Energy increased [Unknown]
  - Fatigue [Unknown]
  - Hypersensitivity [Unknown]
  - Hypersensitivity [Unknown]
  - Dyspnoea [Unknown]
  - Inappropriate schedule of product administration [Unknown]
  - Hunger [Unknown]
  - Weight fluctuation [Unknown]
  - Fatigue [Recovering/Resolving]
  - Headache [Recovering/Resolving]
  - Dizziness [Unknown]
  - Fatigue [Unknown]
  - Headache [Unknown]
  - Dyspnoea exertional [Not Recovered/Not Resolved]
  - Hypertension [Unknown]
  - Product administration error [Recovered/Resolved]
  - Complication associated with device [Not Recovered/Not Resolved]
  - Weight fluctuation [Not Recovered/Not Resolved]
  - Weight fluctuation [Unknown]
  - Weight fluctuation [Unknown]
  - Weight fluctuation [Unknown]
  - Hypertension [Not Recovered/Not Resolved]
  - Device occlusion [Not Recovered/Not Resolved]
  - Dyspnoea exertional [Unknown]
  - Dyspnoea [Not Recovered/Not Resolved]
  - Weight fluctuation [Unknown]
  - COVID-19 [Unknown]
  - Inappropriate schedule of product administration [Unknown]
  - Inappropriate schedule of product administration [Unknown]
  - Weight fluctuation [Unknown]
  - Unevaluable event [Recovering/Resolving]
  - Weight fluctuation [Not Recovered/Not Resolved]
  - Muscle spasms [Unknown]
  - Peripheral swelling [Not Recovered/Not Resolved]
  - Dyspnoea [Not Recovered/Not Resolved]
  - Dyspnoea [Unknown]
  - Blood disorder [Unknown]
  - Hypoaesthesia [Not Recovered/Not Resolved]
  - Mass [Not Recovered/Not Resolved]
  - Faeces soft [Not Recovered/Not Resolved]
  - Hypoaesthesia [Not Recovered/Not Resolved]
  - Abdominal pain [Not Recovered/Not Resolved]

NARRATIVE: CASE EVENT DATE: 20220101
